FAERS Safety Report 5766743-2 (Version None)
Quarter: 2008Q2

REPORT INFORMATION
  Report Type: 
  Country: None (occurrence: None)
  Receive Date: 20080609
  Receipt Date: 20080528
  Transmission Date: 20081010
  Serious: Yes (Other)
  Sender: FDA-Public Use
  Company Number: 163-20785-08031951

PATIENT
  Age: 76 Year
  Sex: Female

DRUGS (2)
  1. THALOMID [Suspect]
     Indication: PANCREATIC CARCINOMA
     Dosage: 50 MG, 1 IN 1 D, ORAL; 250 MG, QD, DAYS 1-7, 15-21 Q28 DAYS X2 CYCLES
     Route: 048
     Dates: start: 20080121, end: 20080327
  2. TEMODAR [Concomitant]

REACTIONS (10)
  - GASTRIC DILATATION [None]
  - HEPATIC LESION [None]
  - HEPATIC MASS [None]
  - KIDNEY FIBROSIS [None]
  - LYMPHOPENIA [None]
  - MALIGNANT NEOPLASM PROGRESSION [None]
  - NEUROPATHY PERIPHERAL [None]
  - OPPORTUNISTIC INFECTION [None]
  - PANCREATIC MASS [None]
  - THROMBOCYTOPENIA [None]
